FAERS Safety Report 15478946 (Version 1)
Quarter: 2018Q4

REPORT INFORMATION
  Report Type: Spontaneous
  Country: RU (occurrence: RU)
  Receive Date: 20181009
  Receipt Date: 20181009
  Transmission Date: 20190205
  Serious: Yes (Other)
  Sender: FDA-Public Use
  Company Number: RU-ASPEN-GLO2018RU010040

PATIENT
  Age: 12 Year
  Sex: Female

DRUGS (4)
  1. THYMOGLOBULIN [Suspect]
     Active Substance: LAPINE T-LYMPHOCYTE IMMUNE GLOBULIN
     Indication: BONE MARROW CONDITIONING REGIMEN
     Route: 065
  2. BUSULFAN. [Suspect]
     Active Substance: BUSULFAN
     Indication: BONE MARROW CONDITIONING REGIMEN
     Dosage: 4 MG/KG
     Route: 065
  3. FLUDARABINE [Suspect]
     Active Substance: FLUDARABINE PHOSPHATE
     Indication: BONE MARROW CONDITIONING REGIMEN
     Route: 065
  4. CYCLOPHOSPHAMIDE. [Suspect]
     Active Substance: CYCLOPHOSPHAMIDE
     Indication: BONE MARROW CONDITIONING REGIMEN
     Dosage: 20 MG/KG
     Route: 065

REACTIONS (2)
  - Transplant rejection [Unknown]
  - Drug ineffective [Unknown]
